FAERS Safety Report 8073238-2 (Version None)
Quarter: 2012Q1

REPORT INFORMATION
  Report Type: 
  Country: None (occurrence: None)
  Receive Date: 20120120
  Receipt Date: 20120104
  Transmission Date: 20120608
  Serious: Yes (Death)
  Sender: FDA-Public Use
  Company Number: 1158550

PATIENT
  Age: 37 Year
  Sex: Female

DRUGS (14)
  1. FENTANYL CITRATE [Suspect]
  2. ARIPIPRAZOLE [Suspect]
  3. RANITIDINE [Suspect]
  4. PREDNISONE TAB [Suspect]
  5. CLONAZEPAM [Suspect]
  6. TOPIRAMATE [Suspect]
  7. SIMVASTATIN [Suspect]
  8. GEMFIBROZIL [Suspect]
  9. DULOXETIME HYDROCHLORIDE [Suspect]
  10. LEVOTHYROXINE SODIUM [Suspect]
  11. OXCARBAZEPINE [Suspect]
  12. (ETHANOL) [Suspect]
  13. METFORMIN HCL [Suspect]
  14. BUPROPION HCL [Suspect]

REACTIONS (4)
  - COMPLETED SUICIDE [None]
  - RESPIRATORY ARREST [None]
  - CARDIAC ARREST [None]
  - SELF-MEDICATION [None]
